FAERS Safety Report 18339762 (Version 1)
Quarter: 2020Q4

REPORT INFORMATION
  Report Type: Report from Study
  Country: US (occurrence: US)
  Receive Date: 20201002
  Receipt Date: 20201002
  Transmission Date: 20210113
  Serious: Yes (Hospitalization, Other)
  Sender: FDA-Public Use
  Company Number: US-JNJFOC-A-NJ2020-205368

PATIENT
  Age: 48 Year
  Sex: Male
  Weight: 86.17 kg

DRUGS (5)
  1. SILDENAFIL CITRATE. [Concomitant]
     Active Substance: SILDENAFIL CITRATE
  2. UPTRAVI [Suspect]
     Active Substance: SELEXIPAG
     Indication: PULMONARY ARTERIAL HYPERTENSION
     Dosage: 400 MG, BID
     Route: 048
     Dates: start: 202003, end: 202006
  3. LETAIRIS [Concomitant]
     Active Substance: AMBRISENTAN
  4. TRIUMEQ [Concomitant]
     Active Substance: ABACAVIR SULFATE\DOLUTEGRAVIR SODIUM\LAMIVUDINE
  5. TYLENOL [Concomitant]
     Active Substance: ACETAMINOPHEN

REACTIONS (22)
  - Blood urine present [Unknown]
  - Illness [Unknown]
  - Fluid retention [Unknown]
  - Congestive hepatopathy [Recovered/Resolved]
  - Aspartate aminotransferase increased [Recovered/Resolved]
  - Ischaemia [Recovered/Resolved]
  - Vomiting [Unknown]
  - Headache [Unknown]
  - Crying [Unknown]
  - Hepatitis viral [Recovered/Resolved]
  - Fluid overload [Unknown]
  - Suicidal ideation [Unknown]
  - Pain [Unknown]
  - Unevaluable event [Unknown]
  - Hallucination [Unknown]
  - Transaminases increased [Recovered/Resolved]
  - Drug-induced liver injury [Recovered/Resolved]
  - Liver disorder [Unknown]
  - Peripheral swelling [Unknown]
  - Alanine aminotransferase increased [Recovered/Resolved]
  - Hospitalisation [Unknown]
  - Faeces discoloured [Unknown]
